FAERS Safety Report 12771648 (Version 1)
Quarter: 2016Q3

REPORT INFORMATION
  Report Type: Spontaneous
  Country: MY (occurrence: MY)
  Receive Date: 20160922
  Receipt Date: 20160922
  Transmission Date: 20161109
  Serious: No
  Sender: FDA-Public Use
  Company Number: MY-HTU-2016MY011956

PATIENT
  Age: 55 Year
  Sex: Female

DRUGS (2)
  1. PETHIDINE [Concomitant]
     Active Substance: MEPERIDINE
     Route: 008
  2. ALOXI [Suspect]
     Active Substance: PALONOSETRON HYDROCHLORIDE
     Indication: PROPHYLAXIS OF NAUSEA AND VOMITING
     Dosage: 75 ?G, SINGLE
     Route: 042
     Dates: start: 201609, end: 201609

REACTIONS (2)
  - Blood sodium decreased [Unknown]
  - Ventricular extrasystoles [Unknown]

NARRATIVE: CASE EVENT DATE: 201609
